FAERS Safety Report 20329427 (Version 11)
Quarter: 2024Q1

REPORT INFORMATION
  Report Type: Spontaneous
  Country: US (occurrence: US)
  Receive Date: 20220112
  Receipt Date: 20240227
  Transmission Date: 20240410
  Serious: Yes (Hospitalization, Other)
  Sender: FDA-Public Use
  Company Number: US-PFIZER INC-202101767291

PATIENT
  Age: 59 Year
  Sex: Male
  Weight: 90.72 kg

DRUGS (22)
  1. INLYTA [Suspect]
     Active Substance: AXITINIB
     Indication: Renal cancer metastatic
     Dosage: 5 MG, 2X/DAY
     Route: 048
     Dates: start: 2021
  2. INLYTA [Suspect]
     Active Substance: AXITINIB
     Indication: Bone disorder
     Dosage: 5 MG, 2X/DAY
     Route: 048
     Dates: start: 20211118
  3. INLYTA [Suspect]
     Active Substance: AXITINIB
     Indication: Renal cancer stage IV
     Dosage: 5 MG, 2X/DAY
     Route: 048
     Dates: start: 20211126
  4. INLYTA [Suspect]
     Active Substance: AXITINIB
     Dosage: 8 MG, DAILY, (MORNING DOSE IS 5MG, EVENING DOSE IS 3MG. TOTAL OF 8MG PER DAY )
     Route: 048
     Dates: start: 20220909
  5. INLYTA [Suspect]
     Active Substance: AXITINIB
     Dosage: 10 MG PER DAY
     Dates: start: 202211
  6. INLYTA [Suspect]
     Active Substance: AXITINIB
     Dosage: 7 MG PER DAY
  7. AMLODIPINE BESYLATE [Concomitant]
     Active Substance: AMLODIPINE BESYLATE
     Dosage: UNK, (STILL TAKING: NO)
  8. CALCIUM CARBONATE [Concomitant]
     Active Substance: CALCIUM CARBONATE
     Dosage: UNK
  9. CURCUMIN [Concomitant]
     Active Substance: CURCUMIN
     Dosage: UNK
  10. FISH OIL [Concomitant]
     Active Substance: FISH OIL
     Dosage: UNK
  11. KEYTRUDA [Concomitant]
     Active Substance: PEMBROLIZUMAB
     Dosage: UNK (EVERY 6 WEEKS THAT IS 450 MG)
     Dates: end: 202311
  12. OXYCODONE HYDROCHLORIDE [Concomitant]
     Active Substance: OXYCODONE HYDROCHLORIDE
     Indication: Analgesic therapy
     Dosage: 5 MG (2-3 TIMES A DAY)
     Dates: end: 202401
  13. HERBALS\TURMERIC [Concomitant]
     Active Substance: HERBALS\TURMERIC
     Dosage: UNK, (STILL TAKING: NO)
  14. VITAMIN D3 [Concomitant]
     Active Substance: CHOLECALCIFEROL
     Dosage: UNK
  15. PROCHLORPERAZINE [Concomitant]
     Active Substance: PROCHLORPERAZINE
     Dosage: UNK, (STILL TAKING: NO)
  16. HYDROMORPHONE HYDROCHLORIDE [Concomitant]
     Active Substance: HYDROMORPHONE HYDROCHLORIDE
     Dosage: UNK, (STILL TAKING: NO)
  17. IBUPROFEN [Concomitant]
     Active Substance: IBUPROFEN
     Dosage: UNK, (STILL TAKING: NO)
  18. LORATADINE D [Concomitant]
     Active Substance: LORATADINE\PSEUDOEPHEDRINE SULFATE
     Dosage: UNK, (STILL TAKING: NO)
  19. ACETAMINOPHEN\HYDROCODONE [Concomitant]
     Active Substance: ACETAMINOPHEN\HYDROCODONE
     Dosage: UNK, (STILL TAKING: NO)
  20. FLUBLOK QUADRIVALENT NOS [Concomitant]
     Active Substance: INFLUENZA VIRUS VACCINE
     Dosage: UNK
  21. OXYCONTIN [Concomitant]
     Active Substance: OXYCODONE HYDROCHLORIDE
     Dosage: UNK
  22. SENNA PLUS [Concomitant]
     Active Substance: DOCUSATE SODIUM\SENNOSIDES\SENNOSIDES A AND B
     Indication: Constipation
     Dosage: UNK, (STILL TAKING: NO)

REACTIONS (26)
  - Fistula [Recovered/Resolved]
  - Ileostomy [Recovered/Resolved]
  - Constipation [Recovered/Resolved]
  - Hip fracture [Recovered/Resolved]
  - Abdominal distension [Recovered/Resolved]
  - Blood pressure increased [Recovered/Resolved]
  - Fatigue [Recovered/Resolved]
  - Dry mouth [Recovered/Resolved]
  - Hyperaesthesia [Recovered/Resolved]
  - Dry skin [Recovered/Resolved]
  - Hypotension [Recovered/Resolved]
  - Oral pain [Recovered/Resolved]
  - Asthenia [Recovered/Resolved]
  - Stomatitis [Recovered/Resolved]
  - Weight decreased [Recovered/Resolved]
  - Fatigue [Recovered/Resolved]
  - Ear disorder [Unknown]
  - Nasal discomfort [Unknown]
  - Arthralgia [Recovered/Resolved]
  - Glossitis [Recovered/Resolved]
  - Abdominal pain [Unknown]
  - Fracture pain [Recovered/Resolved]
  - Glossodynia [Recovered/Resolved]
  - Nerve injury [Unknown]
  - Joint effusion [Unknown]
  - Neoplasm progression [Not Recovered/Not Resolved]

NARRATIVE: CASE EVENT DATE: 20210101
